FAERS Safety Report 15927556 (Version 1)
Quarter: 2019Q1

REPORT INFORMATION
  Report Type: Spontaneous
  Country: IT (occurrence: IT)
  Receive Date: 20190206
  Receipt Date: 20190206
  Transmission Date: 20190417
  Serious: Yes (Hospitalization)
  Sender: FDA-Public Use
  Company Number: IT-PFIZER INC-2019048087

PATIENT
  Age: 75 Year
  Sex: Male

DRUGS (2)
  1. BRILIQUE [Suspect]
     Active Substance: TICAGRELOR
     Indication: CORONARY ARTERY DISEASE
     Dosage: 60 MG, 1X/DAY
     Route: 048
     Dates: start: 20190109, end: 20190110
  2. TORVAST [Suspect]
     Active Substance: ATORVASTATIN
     Indication: HYPERCHOLESTEROLAEMIA
     Dosage: 40 MG, 1X/DAY
     Route: 048
     Dates: start: 20190109, end: 20190110

REACTIONS (5)
  - Laryngeal oedema [Recovering/Resolving]
  - Vomiting [Recovering/Resolving]
  - Hypotension [Recovering/Resolving]
  - Nausea [Recovering/Resolving]
  - Loss of consciousness [Recovering/Resolving]

NARRATIVE: CASE EVENT DATE: 20190109
